FAERS Safety Report 8809280 (Version 1)
Quarter: 2012Q4

REPORT INFORMATION
  Report Type: Spontaneous
  Country: US (occurrence: None)
  Receive Date: 20120924
  Receipt Date: 20120924
  Transmission Date: 20130627
  Serious: Yes (Other)
  Sender: FDA-Public Use
  Company Number: None

PATIENT
  Age: 56 Year
  Sex: Female
  Weight: 79.38 kg

DRUGS (1)
  1. DONEPEZIL [Suspect]
     Indication: COGNITIVE IMPAIRMENT
     Route: 048
     Dates: start: 20120910, end: 20120920

REACTIONS (1)
  - Swelling face [None]
